FAERS Safety Report 21118192 (Version 16)
Quarter: 2024Q1

REPORT INFORMATION
  Report Type: Report from Study
  Country: US (occurrence: US)
  Receive Date: 20220722
  Receipt Date: 20240112
  Transmission Date: 20240410
  Serious: No
  Sender: FDA-Public Use
  Company Number: US-NOVARTISTESTPH-NVSC2022US165797

PATIENT
  Age: 63 Year
  Sex: Female

DRUGS (1)
  1. KESIMPTA [Suspect]
     Active Substance: OFATUMUMAB
     Indication: Relapsing multiple sclerosis
     Dosage: 20 MG, QMO
     Route: 058
     Dates: start: 20220716

REACTIONS (9)
  - Blood pressure increased [Unknown]
  - Blood cholesterol increased [Unknown]
  - Diplopia [Unknown]
  - Urinary tract infection [Unknown]
  - Emotional distress [Unknown]
  - Temperature intolerance [Unknown]
  - Weight decreased [Unknown]
  - Fall [Unknown]
  - Pain [Unknown]

NARRATIVE: CASE EVENT DATE: 20220720
